FAERS Safety Report 20079513 (Version 7)
Quarter: 2024Q3

REPORT INFORMATION
  Report Type: Report from Study
  Country: BR (occurrence: BR)
  Receive Date: 20211117
  Receipt Date: 20240718
  Transmission Date: 20241016
  Serious: Yes (Other)
  Sender: NOVARTIS
  Company Number: BR-NOVARTISPH-NVSC2021BR259919

PATIENT
  Sex: Female

DRUGS (3)
  1. KISQALI [Suspect]
     Active Substance: RIBOCICLIB
     Indication: Product used for unknown indication
     Dosage: UNK
     Route: 065
     Dates: start: 20201215
  2. KISQALI [Suspect]
     Active Substance: RIBOCICLIB
     Dosage: 3 DOSAGE FORM
     Route: 065
     Dates: start: 20201222
  3. LETROZOLE [Suspect]
     Active Substance: LETROZOLE
     Indication: Product used for unknown indication
     Dosage: UNK
     Route: 065
     Dates: start: 20201215

REACTIONS (13)
  - Metastasis [Unknown]
  - Thrombosis [Recovered/Resolved]
  - Metastases to liver [Unknown]
  - Metastases to peritoneum [Unknown]
  - Metastases to bone [Unknown]
  - Aphthous ulcer [Recovered/Resolved]
  - Eating disorder [Recovered/Resolved]
  - Speech disorder [Recovered/Resolved]
  - Poor peripheral circulation [Unknown]
  - Feeling abnormal [Unknown]
  - Malaise [Unknown]
  - Drug ineffective [Unknown]
  - Product use issue [Unknown]
